FAERS Safety Report 8818895 (Version 2)
Quarter: 2013Q1

REPORT INFORMATION
  Report Type: Spontaneous
  Country: BR (occurrence: BR)
  Receive Date: 20121001
  Receipt Date: 20130327
  Transmission Date: 20140127
  Serious: Yes (Other)
  Sender: FDA-Public Use
  Company Number: PHHY2012BR084760

PATIENT
  Sex: Female

DRUGS (3)
  1. DIOVAN AMLO FIX [Suspect]
     Indication: HYPERTENSION
     Dosage: 1 DF (1 TABLET OF 160/5 MG), DAILY
     Route: 048
  2. DIOVAN AMLO FIX [Suspect]
     Dosage: 0.5 DF A DAY (0.5 TABLET OF 320/10 MG TABLET)
  3. DIOVAN AMLO FIX [Suspect]
     Dosage: 1 DF (1 TABLET OF 160/5 MG), DAILY
     Route: 048

REACTIONS (6)
  - Labyrinthitis [Recovered/Resolved]
  - Blood pressure increased [Unknown]
  - Weight decreased [Not Recovered/Not Resolved]
  - Anxiety [Recovering/Resolving]
  - Palpitations [Recovering/Resolving]
  - Wrong technique in drug usage process [Unknown]
